FAERS Safety Report 5232611-8 (Version None)
Quarter: 2007Q1

REPORT INFORMATION
  Report Type: 
  Country: None (occurrence: None)
  Receive Date: 20070207
  Receipt Date: 20070202
  Transmission Date: 20070707
  Serious: Yes (Hospitalization)
  Sender: FDA-Public Use
  Company Number: DE-AVENTIS-200611117DE

PATIENT
  Age: 66 Year
  Sex: Female
  Weight: 87 kg

DRUGS (5)
  1. DOCETAXEL [Suspect]
     Indication: BREAST CANCER
     Route: 042
     Dates: start: 20060406, end: 20060406
  2. GEMZAR [Suspect]
     Indication: BREAST CANCER
     Route: 042
     Dates: start: 20060406, end: 20060406
  3. GEMZAR [Suspect]
     Route: 042
     Dates: start: 20060413, end: 20060413
  4. DARBEPOETIN [Concomitant]
     Indication: ANAEMIA
     Route: 058
     Dates: start: 20060406, end: 20060406
  5. DARBEPOETIN [Concomitant]
     Indication: PROPHYLAXIS
     Route: 058
     Dates: start: 20060406, end: 20060406

REACTIONS (5)
  - DEPRESSION [None]
  - FATIGUE [None]
  - PNEUMONITIS TOXOPLASMAL [None]
  - PYREXIA [None]
  - VERTIGO [None]
